FAERS Safety Report 5837086-3 (Version None)
Quarter: 2008Q3

REPORT INFORMATION
  Report Type: 
  Country: None (occurrence: None)
  Receive Date: 20080807
  Receipt Date: 20080115
  Transmission Date: 20090109
  Serious: No
  Sender: FDA-Public Use
  Company Number: A0703143A

PATIENT
  Age: 67 Year
  Sex: Female

DRUGS (4)
  1. TAGAMET HB 200 [Suspect]
     Dates: start: 20080113, end: 20080113
  2. AMLODIPINE [Concomitant]
  3. LISINOPRIL [Concomitant]
  4. METOPROLOL SUCCINATE [Concomitant]

REACTIONS (3)
  - BLOOD PRESSURE INCREASED [None]
  - FEELING HOT [None]
  - PALPITATIONS [None]
